FAERS Safety Report 10400702 (Version 1)
Quarter: 2014Q1

REPORT INFORMATION
  Report Type: Spontaneous
  Country: US (occurrence: None)
  Receive Date: 20130815
  Receipt Date: 20130815
  Transmission Date: 20141002
  Serious: Yes (Other)
  Sender: FDA-Public Use
  Company Number: ADR-2012-01455

PATIENT
  Sex: Female

DRUGS (2)
  1. LIORESAL INTRATHECAL (BACLOFEN INJECTION)500MCG/ML [Suspect]
     Indication: MUSCLE SPASTICITY
     Dosage: 60MCG/DAY
  2. LIORESAL INTRATHECAL (BACLOFEN INJECTION)500MCG/ML [Suspect]
     Indication: MULTIPLE SCLEROSIS
     Dosage: 60MCG/DAY

REACTIONS (2)
  - Musculoskeletal stiffness [None]
  - Back pain [None]
